FAERS Safety Report 6104078-9 (Version None)
Quarter: 2009Q1

REPORT INFORMATION
  Report Type: 
  Country: None (occurrence: None)
  Receive Date: 20090305
  Receipt Date: 20090227
  Transmission Date: 20090719
  Serious: Yes (Hospitalization)
  Sender: FDA-Public Use
  Company Number: FR-ABBOTT-09P-056-0500580-00

PATIENT
  Sex: Female

DRUGS (6)
  1. SERC [Suspect]
     Indication: MENIERE'S DISEASE
     Route: 048
     Dates: start: 20081230, end: 20081230
  2. BIPROFENID [Suspect]
     Indication: OSTEOARTHRITIS
     Route: 048
     Dates: start: 20081230, end: 20081230
  3. STRESAM [Suspect]
     Indication: ANXIETY
     Route: 048
     Dates: start: 20081230, end: 20081230
  4. TANGANIL [Suspect]
     Indication: MENIERE'S DISEASE
     Route: 048
     Dates: start: 20081230, end: 20081230
  5. MENOPHYTEA VENTRE PLAT (VEGETAL EXTRACTS) [Concomitant]
     Indication: DRUG USE FOR UNKNOWN INDICATION
     Dosage: FOOD SUPPLEMENT
  6. SPIRULINA (SEA-WEED) [Concomitant]
     Indication: DRUG USE FOR UNKNOWN INDICATION
     Dosage: FOOD SUPPLEMENT

REACTIONS (2)
  - CYTOLYTIC HEPATITIS [None]
  - OVERDOSE [None]
